FAERS Safety Report 14741211 (Version 1)
Quarter: 2018Q2

REPORT INFORMATION
  Report Type: Spontaneous
  Country: FR (occurrence: FR)
  Receive Date: 20180410
  Receipt Date: 20180410
  Transmission Date: 20180711
  Serious: Yes (Hospitalization)
  Sender: FDA-Public Use
  Company Number: FR-ELI_LILLY_AND_COMPANY-FR201804003386

PATIENT
  Age: 80 Year
  Sex: Female

DRUGS (3)
  1. ZOPHREN                            /00955302/ [Suspect]
     Active Substance: ONDANSETRON
     Indication: NAUSEA
     Dosage: 8 MG, WEEKLY (1/W)
     Route: 042
     Dates: start: 20180223, end: 20180309
  2. PRIMPERAN [Suspect]
     Active Substance: METOCLOPRAMIDE HYDROCHLORIDE
     Indication: NAUSEA
     Dosage: 10 MG, WEEKLY (1/W)
     Route: 042
     Dates: start: 20180223, end: 20180309
  3. GEMZAR [Suspect]
     Active Substance: GEMCITABINE HYDROCHLORIDE
     Indication: PANCREATIC CARCINOMA
     Dosage: 1200 MG, WEEKLY (1/W)
     Route: 042
     Dates: start: 20180223, end: 20180309

REACTIONS (2)
  - Hypertension [Recovered/Resolved]
  - Encephalopathy [Recovering/Resolving]

NARRATIVE: CASE EVENT DATE: 20180317
